FAERS Safety Report 7638525-8 (Version None)
Quarter: 2011Q3

REPORT INFORMATION
  Report Type: 
  Country: None (occurrence: None)
  Receive Date: 20110727
  Receipt Date: 20110715
  Transmission Date: 20111222
  Serious: Yes (Other)
  Sender: FDA-Public Use
  Company Number: PHHY2011DE64240

PATIENT
  Sex: Female

DRUGS (2)
  1. CLOZAPINE [Suspect]
     Dosage: 2 DF, QD
  2. IMIPRAMINE [Concomitant]
     Dosage: UNK UKN, UNK

REACTIONS (5)
  - POLYNEUROPATHY [None]
  - SKIN REACTION [None]
  - CONSTIPATION [None]
  - SALIVARY HYPERSECRETION [None]
  - SOMNOLENCE [None]
